FAERS Safety Report 9032740 (Version 1)
Quarter: 2013Q1

REPORT INFORMATION
  Report Type: Spontaneous
  Country: US (occurrence: US)
  Receive Date: 20130128
  Receipt Date: 20130128
  Transmission Date: 20140127
  Serious: Yes (Hospitalization)
  Sender: FDA-Public Use
  Company Number: US-BIOGENIDEC-2013BI006696

PATIENT
  Age: 45 Year
  Sex: Female

DRUGS (1)
  1. AVONEX [Suspect]
     Indication: MULTIPLE SCLEROSIS
     Route: 030
     Dates: start: 20110128

REACTIONS (4)
  - Pulmonary thrombosis [Unknown]
  - Foot fracture [Recovered/Resolved]
  - Lower respiratory tract infection [Recovered/Resolved]
  - Influenza like illness [Recovered/Resolved]
